FAERS Safety Report 24636402 (Version 1)
Quarter: 2024Q4

REPORT INFORMATION
  Report Type: Report from Study
  Country: US (occurrence: US)
  Receive Date: 20241119
  Receipt Date: 20241119
  Transmission Date: 20250115
  Serious: Yes (Hospitalization)
  Sender: JOHNSON AND JOHNSON
  Company Number: US-JNJFOC-20241130219

PATIENT
  Sex: Female

DRUGS (2)
  1. SPRAVATO [Suspect]
     Active Substance: ESKETAMINE
     Indication: Depression
     Dosage: ^56 MG, 6 TOTAL DOSES^
     Route: 045
     Dates: start: 20231124, end: 20231211
  2. SPRAVATO [Suspect]
     Active Substance: ESKETAMINE
     Dosage: ^84 MG, 34 TOTAL DOSES^
     Route: 045
     Dates: start: 20231214, end: 20240910

REACTIONS (1)
  - Hospitalisation [Unknown]
